FAERS Safety Report 18311746 (Version 1)
Quarter: 2020Q3

REPORT INFORMATION
  Report Type: Spontaneous
  Country: CN (occurrence: CN)
  Receive Date: 20200925
  Receipt Date: 20200925
  Transmission Date: 20201103
  Serious: Yes (Hospitalization)
  Sender: FDA-Public Use
  Company Number: CN-STRIDES ARCOLAB LIMITED-2020SP011320

PATIENT
  Sex: Female

DRUGS (5)
  1. XIAO ER CHI QIAO QING RE KE LI [Concomitant]
     Indication: TONSILLITIS
     Dosage: UNK
     Route: 065
     Dates: start: 2018
  2. CEFIXIME. [Suspect]
     Active Substance: CEFIXIME
     Indication: TONSILLITIS
     Dosage: UNK
     Route: 048
     Dates: start: 2018
  3. AZITHROMYCIN ANHYDROUS. [Suspect]
     Active Substance: AZITHROMYCIN ANHYDROUS
     Indication: TONSILLITIS
     Dosage: 10 MILLIGRAM/KILOGRAM, PER DAY, INFUSION
     Route: 042
     Dates: start: 2018
  4. HOUTTUYNIA CORDATA [Concomitant]
     Active Substance: HERBALS\HOUTTUYNIA CORDATA WHOLE
     Indication: TONSILLITIS
     Dosage: UNK
     Route: 065
     Dates: start: 2018
  5. IBUPROFEN. [Suspect]
     Active Substance: IBUPROFEN
     Indication: TONSILLITIS
     Dosage: UNK, SUSPENSION
     Route: 065
     Dates: start: 2018

REACTIONS (11)
  - Palmar erythema [Unknown]
  - Pruritus [Unknown]
  - Vanishing bile duct syndrome [Recovered/Resolved]
  - Cholestasis [Recovered/Resolved]
  - Jaundice [Recovered/Resolved]
  - Abdominal pain [Unknown]
  - Off label use [Unknown]
  - Faeces pale [Unknown]
  - Nausea [Unknown]
  - Hepatic necrosis [Recovered/Resolved]
  - Swelling [Recovered/Resolved]

NARRATIVE: CASE EVENT DATE: 2018
